FAERS Safety Report 24985345 (Version 1)
Quarter: 2025Q1

REPORT INFORMATION
  Report Type: Spontaneous
  Country: US (occurrence: US)
  Receive Date: 20250219
  Receipt Date: 20250219
  Transmission Date: 20250408
  Serious: No
  Sender: ROCHE
  Company Number: US-ROCHE-10000202949

PATIENT
  Sex: Female

DRUGS (1)
  1. COTELLIC [Suspect]
     Active Substance: COBIMETINIB FUMARATE
     Indication: Histiocytosis
     Dosage: ON DAY 1 AND DAY 21
     Route: 048
     Dates: start: 202202

REACTIONS (2)
  - Haemorrhage [Unknown]
  - Contusion [Unknown]
